FAERS Safety Report 14698703 (Version 1)
Quarter: 2018Q1

REPORT INFORMATION
  Report Type: Spontaneous
  Country: US (occurrence: US)
  Receive Date: 20180330
  Receipt Date: 20180330
  Transmission Date: 20180509
  Serious: Yes (Hospitalization, Other)
  Sender: FDA-Public Use
  Company Number: PHEH2018US010839

PATIENT
  Sex: Female

DRUGS (5)
  1. ATARAX [Concomitant]
     Active Substance: HYDROXYZINE HYDROCHLORIDE
     Indication: PRODUCT USED FOR UNKNOWN INDICATION
     Route: 065
  2. COSENTYX [Suspect]
     Active Substance: SECUKINUMAB
     Indication: PRODUCT USED FOR UNKNOWN INDICATION
     Dosage: 300 MG, UNK
     Route: 065
  3. ESCITALOPRAM OXALATE. [Concomitant]
     Active Substance: ESCITALOPRAM OXALATE
     Indication: PRODUCT USED FOR UNKNOWN INDICATION
     Route: 065
  4. LOSARTAN. [Concomitant]
     Active Substance: LOSARTAN
     Indication: PRODUCT USED FOR UNKNOWN INDICATION
     Route: 065
  5. COSENTYX [Suspect]
     Active Substance: SECUKINUMAB
     Dosage: LOADING DOSES
     Route: 065
     Dates: start: 20180202

REACTIONS (11)
  - Pain [Unknown]
  - Lymphadenopathy [Unknown]
  - Fatigue [Unknown]
  - Heart rate increased [Unknown]
  - Sarcoidosis [Unknown]
  - Dysphagia [Unknown]
  - Abdominal pain upper [Unknown]
  - Neuralgia [Unknown]
  - Injection site reaction [Unknown]
  - Weight decreased [Unknown]
  - Night sweats [Unknown]
